FAERS Safety Report 7389982-6 (Version None)
Quarter: 2011Q1

REPORT INFORMATION
  Report Type: 
  Country: None (occurrence: None)
  Receive Date: 20110324
  Receipt Date: 20110309
  Transmission Date: 20110831
  Serious: Yes (Other)
  Sender: FDA-Public Use
  Company Number: 2009S1006319

PATIENT
  Age: 49 Year
  Sex: Female
  Weight: 72.1219 kg

DRUGS (4)
  1. HYDROCHLOROTHIAZIDE [Concomitant]
  2. LEXAPRO [Concomitant]
  3. PHOSPHOSODA FLAVOR NOT SPECIFIED [Suspect]
     Indication: COLONOSCOPY
     Dates: start: 20060401
  4. RISPERDAL [Concomitant]

REACTIONS (3)
  - RENAL FAILURE ACUTE [None]
  - RENAL FAILURE CHRONIC [None]
  - NEPHROSCLEROSIS [None]
